FAERS Safety Report 5711710-8 (Version None)
Quarter: 2008Q2

REPORT INFORMATION
  Report Type: 
  Country: None (occurrence: None)
  Receive Date: 20080421
  Receipt Date: 20080415
  Transmission Date: 20081010
  Serious: Yes (Hospitalization)
  Sender: FDA-Public Use
  Company Number: PHHY2008JP03085

PATIENT
  Age: 74 Year
  Sex: Female

DRUGS (7)
  1. COMTAN [Suspect]
     Indication: DRUG EFFECT DECREASED
     Dosage: 400 MG/DAY
     Route: 048
     Dates: start: 20070928
  2. MENESIT [Suspect]
     Indication: PARKINSON'S DISEASE
     Route: 048
     Dates: start: 20031024
  3. CABASER [Suspect]
     Indication: PARKINSON'S DISEASE
     Route: 048
     Dates: start: 20031024
  4. DOMIN [Suspect]
     Indication: PARKINSON'S DISEASE
     Route: 048
     Dates: start: 20060722
  5. SELEGILINE HCL [Suspect]
     Indication: PARKINSON'S DISEASE
     Route: 048
     Dates: start: 20061216
  6. ALDACTONE [Concomitant]
     Indication: OEDEMA
     Route: 048
     Dates: start: 20060515
  7. MEVALOTIN [Concomitant]
     Indication: HYPERLIPIDAEMIA
     Route: 048
     Dates: start: 20060722

REACTIONS (3)
  - DECREASED ACTIVITY [None]
  - FALL [None]
  - GAIT DISTURBANCE [None]
